FAERS Safety Report 4300480-6 (Version None)
Quarter: 2004Q1

REPORT INFORMATION
  Report Type: 
  Country: None (occurrence: None)
  Receive Date: 20040219
  Receipt Date: 20040219
  Transmission Date: 20041129
  Serious: Yes (Other)
  Sender: FDA-Public Use
  Company Number: None

PATIENT
  Age: 67 Year
  Sex: Female
  Weight: 74.8435 kg

DRUGS (1)
  1. ACTONEL [Suspect]
     Indication: BONE SCAN
     Dosage: 35 MG., 1 TIME A WEEK W/ H2O
     Dates: start: 20010101

REACTIONS (1)
  - VISUAL ACUITY REDUCED [None]
